FAERS Safety Report 6346376-X (Version None)
Quarter: 2009Q3

REPORT INFORMATION
  Report Type: 
  Country: None (occurrence: None)
  Receive Date: 20090821
  Receipt Date: 20090715
  Transmission Date: 20100115
  Serious: No
  Sender: FDA-Public Use
  Company Number: 8047367

PATIENT
  Age: 43 Year
  Sex: Male
  Weight: 72.7 kg

DRUGS (4)
  1. CIMZIA [Suspect]
     Indication: CROHN'S DISEASE
     Dosage: 400 MG SC
     Route: 058
     Dates: start: 20090515
  2. LIALDA [Concomitant]
  3. PURINETHOL [Concomitant]
  4. PROTONIX [Concomitant]

REACTIONS (3)
  - ABDOMINAL PAIN [None]
  - FREQUENT BOWEL MOVEMENTS [None]
  - INJECTION SITE IRRITATION [None]
